FAERS Safety Report 6974511-9 (Version None)
Quarter: 2010Q3

REPORT INFORMATION
  Report Type: 
  Country: None (occurrence: None)
  Receive Date: 20100909
  Receipt Date: 20081209
  Transmission Date: 20110219
  Serious: No
  Sender: FDA-Public Use
  Company Number: US-WYE-H06398608

PATIENT
  Age: 55 Year
  Sex: Female
  Weight: 59.02 kg

DRUGS (3)
  1. PRISTIQ [Suspect]
     Indication: DEPRESSION
     Dosage: 50 MG, FREQUENCY UNKNOWN
     Route: 048
  2. ALPRAZOLAM [Concomitant]
  3. ACIPHEX [Concomitant]

REACTIONS (2)
  - ANXIETY [None]
  - CHEST DISCOMFORT [None]
